FAERS Safety Report 9703354 (Version 3)
Quarter: 2013Q4

REPORT INFORMATION
  Report Type: Report from Study
  Country: US (occurrence: US)
  Receive Date: 20131122
  Receipt Date: 20131230
  Transmission Date: 20140711
  Serious: Yes (Other)
  Sender: FDA-Public Use
  Company Number: PHEH2013US024013

PATIENT
  Age: 57 Year
  Sex: Female
  Weight: 87.75 kg

DRUGS (1)
  1. GILENYA [Suspect]
     Indication: RELAPSING-REMITTING MULTIPLE SCLEROSIS
     Dosage: 0.5 MG, QD
     Route: 048
     Dates: start: 20131113

REACTIONS (6)
  - Feeling hot [Unknown]
  - Chills [Unknown]
  - Sinus bradycardia [Unknown]
  - Headache [Unknown]
  - Dizziness [Recovering/Resolving]
  - Nasopharyngitis [Not Recovered/Not Resolved]
